FAERS Safety Report 13406034 (Version 1)
Quarter: 2017Q2

REPORT INFORMATION
  Report Type: Report from Study
  Country: US (occurrence: US)
  Receive Date: 20170405
  Receipt Date: 20170405
  Transmission Date: 20170830
  Serious: Yes (Death)
  Sender: FDA-Public Use
  Company Number: US-ROCHE-1916372

PATIENT

DRUGS (2)
  1. RAMUCIRUMAB [Suspect]
     Active Substance: RAMUCIRUMAB
     Indication: BREAST CANCER
     Dosage: ON DAY 1 OF 21 DAY CYCLE
     Route: 042
  2. CAPECITABINE. [Suspect]
     Active Substance: CAPECITABINE
     Indication: BREAST CANCER
     Dosage: ON DAY 1-14 OF 21 DAY CYCLE
     Route: 048

REACTIONS (1)
  - Cardiac failure [Fatal]
